FAERS Safety Report 5632963-0 (Version None)
Quarter: 2008Q1

REPORT INFORMATION
  Report Type: 
  Country: None (occurrence: None)
  Receive Date: 20080221
  Receipt Date: 20080218
  Transmission Date: 20080703
  Serious: Yes (Death, Other)
  Sender: FDA-Public Use
  Company Number: PHBS2007JP01079

PATIENT
  Age: 80 Year
  Sex: Male

DRUGS (6)
  1. NEORAL [Suspect]
     Indication: INTERSTITIAL LUNG DISEASE
     Dosage: 150 MG/D
     Route: 048
     Dates: start: 20070105, end: 20070118
  2. NEORAL [Suspect]
     Dosage: 200 MG/D
     Route: 048
     Dates: start: 20070119, end: 20070121
  3. PREDONINE [Suspect]
     Route: 065
  4. FAMOTIDINE [Suspect]
     Route: 065
  5. LASIX [Concomitant]
  6. WARFARIN SODIUM [Concomitant]

REACTIONS (4)
  - BLOOD POTASSIUM INCREASED [None]
  - DRUG INEFFECTIVE [None]
  - HEPATIC FUNCTION ABNORMAL [None]
  - INTERSTITIAL LUNG DISEASE [None]
